FAERS Safety Report 9381335 (Version 1)
Quarter: 2013Q3

REPORT INFORMATION
  Report Type: Report from Study
  Country: LB (occurrence: LB)
  Receive Date: 20130703
  Receipt Date: 20130703
  Transmission Date: 20140515
  Serious: Yes (Death, Hospitalization)
  Sender: FDA-Public Use
  Company Number: LB-SANOFI-AVENTIS-2013SA066262

PATIENT
  Age: 62 Year
  Sex: Male

DRUGS (3)
  1. LANTUS SOLOSTAR [Suspect]
     Indication: DIABETES MELLITUS
     Dosage: 30U IN THE MORNING AND 50U IN THE EVENING WITH TITRATION
     Route: 058
     Dates: start: 201210, end: 2013
  2. SOLOSTAR [Suspect]
     Indication: DEVICE THERAPY
     Route: 058
     Dates: start: 201210, end: 2013
  3. GLUCOPHAGE [Concomitant]
     Indication: DIABETES MELLITUS
     Route: 048
     Dates: end: 2013

REACTIONS (2)
  - Myocardial infarction [Fatal]
  - Off label use [Unknown]
